FAERS Safety Report 24545953 (Version 1)
Quarter: 2024Q4

REPORT INFORMATION
  Report Type: Spontaneous
  Country: JP (occurrence: JP)
  Receive Date: 20241024
  Receipt Date: 20241024
  Transmission Date: 20250114
  Serious: Yes (Hospitalization, Other)
  Sender: BAYER HEALTHCARE PHARMACEUTICALS INC.
  Company Number: JP-BAYER-2024A151961

PATIENT
  Age: 75 Year
  Sex: Male

DRUGS (4)
  1. NUBEQA [Suspect]
     Active Substance: DAROLUTAMIDE
     Indication: Prostate cancer metastatic
     Dosage: 300MG 4 TABLETS/DAY
     Dates: start: 202309
  2. DOCETAXEL [Suspect]
     Active Substance: DOCETAXEL
     Dosage: 75MG/M2
     Dates: start: 202309
  3. DOCETAXEL [Suspect]
     Active Substance: DOCETAXEL
     Dosage: 60MG/M2 (REDUCED)
  4. DOCETAXEL [Suspect]
     Active Substance: DOCETAXEL
     Dosage: 50MG/M2 (RE-REDUCED)

REACTIONS (3)
  - Neutrophil count decreased [Recovered/Resolved]
  - Neuropathy peripheral [Recovered/Resolved]
  - Oedema [Recovered/Resolved]

NARRATIVE: CASE EVENT DATE: 20231004
